FAERS Safety Report 16422834 (Version 2)
Quarter: 2019Q3

REPORT INFORMATION
  Report Type: Spontaneous
  Country: US (occurrence: US)
  Receive Date: 20190612
  Receipt Date: 20190913
  Transmission Date: 20191004
  Serious: No
  Sender: FDA-Public Use
  Company Number: US-009507513-1906USA003430

PATIENT
  Age: 77 Year
  Sex: Female

DRUGS (8)
  1. MIRAPEX [Concomitant]
     Active Substance: PRAMIPEXOLE DIHYDROCHLORIDE
     Dosage: 0.5 MILLIGRAM PER DAY
  2. ATORVASTATIN [Concomitant]
     Active Substance: ATORVASTATIN
     Dosage: 40 MG, 1 DAILY
  3. ALEVE [Concomitant]
     Active Substance: NAPROXEN SODIUM
     Dosage: PRN, USUALLY 1-2 TIMES/ WEEK, ALTERNATED WITH ACETAMINOPHEN (TYLENOL)
  4. XANAX [Concomitant]
     Active Substance: ALPRAZOLAM
     Dosage: 1 TABLET, PRN
     Dates: end: 20190524
  5. SINEMET [Suspect]
     Active Substance: CARBIDOPA\LEVODOPA
     Indication: PARKINSON^S DISEASE
     Dosage: 25/100 MG 6 TIMES A DAY
     Route: 048
     Dates: start: 2016
  6. TYLENOL [Concomitant]
     Active Substance: ACETAMINOPHEN
     Dosage: PRN, USUALLY 1-2 TIMES/ WEEK, ALTERNATED WITH NAPROXEN SODIUM (ALEVE)
  7. FOSAMAX [Concomitant]
     Active Substance: ALENDRONATE SODIUM
     Dosage: ONCE A WEEK
  8. ZOLOFT [Concomitant]
     Active Substance: SERTRALINE HYDROCHLORIDE
     Dosage: 100 MG QD, 1 DAILY

REACTIONS (6)
  - Insomnia [Unknown]
  - Somnolence [Not Recovered/Not Resolved]
  - Dyskinesia [Unknown]
  - Resting tremor [Unknown]
  - Tremor [Unknown]
  - Confusional state [Not Recovered/Not Resolved]

NARRATIVE: CASE EVENT DATE: 2019
